FAERS Safety Report 9108254 (Version 1)
Quarter: 2013Q1

REPORT INFORMATION
  Report Type: Report from Study
  Country: JP (occurrence: JP)
  Receive Date: 20130222
  Receipt Date: 20130222
  Transmission Date: 20140127
  Serious: Yes (Hospitalization)
  Sender: FDA-Public Use
  Company Number: JP-009507513-1302JPN007488

PATIENT
  Age: 70 Year
  Sex: Female

DRUGS (23)
  1. DIAZOXIDE [Suspect]
     Indication: HYPOGLYCAEMIA
     Dosage: 50 MG, TID
     Route: 048
     Dates: start: 20110216, end: 20110217
  2. DIAZOXIDE [Suspect]
     Dosage: 50 MG, BID
     Route: 048
     Dates: start: 20110218, end: 20110218
  3. DIAZOXIDE [Suspect]
     Dosage: 25 MG, QD
     Route: 048
     Dates: start: 20110228, end: 20110311
  4. DIAZOXIDE [Suspect]
     Dosage: 25 MG, BID
     Route: 048
     Dates: start: 20110312, end: 20110413
  5. DIAZOXIDE [Suspect]
     Dosage: 25 MG, TID
     Route: 048
     Dates: start: 20110414, end: 20110430
  6. DIAZOXIDE [Suspect]
     Dosage: 25 MG, TID
     Route: 048
     Dates: start: 20110502, end: 20110504
  7. DIAZOXIDE [Suspect]
     Dosage: 25 MG, BID
     Route: 048
     Dates: start: 20110505, end: 20110815
  8. DIAZOXIDE [Suspect]
     Dosage: 25 MG, TID
     Route: 048
     Dates: start: 20110816, end: 20130206
  9. DIAZOXIDE [Suspect]
     Dosage: 25 MG, QID
     Route: 048
     Dates: start: 20130207
  10. WYPAX [Concomitant]
     Dosage: 0.5 MG. DAILY
     Route: 048
     Dates: start: 20040220
  11. SELBEX [Concomitant]
     Dosage: 100 MG, DAILY
     Route: 048
     Dates: start: 20110810
  12. LOXOPROFEN [Concomitant]
     Dosage: 120 MG, DAILY
     Route: 048
     Dates: start: 20110810
  13. LOXOPROFEN [Concomitant]
     Dosage: UNK, PRN
     Route: 048
  14. INTEBAN [Concomitant]
     Dosage: UNK
     Dates: start: 2006
  15. NOZLEN [Concomitant]
     Dosage: UNK, PRN
     Dates: start: 20080818
  16. OMEPRAL [Concomitant]
     Indication: GASTROOESOPHAGEAL REFLUX DISEASE
     Dosage: 10 MG, DAILY
     Route: 048
     Dates: start: 20110513, end: 20120824
  17. OMEPRAL [Concomitant]
     Indication: GASTRITIS
  18. LASIX (FUROSEMIDE) [Concomitant]
     Indication: OEDEMA
     Dosage: 10 MG, DAILY
     Route: 048
     Dates: start: 20110513, end: 20110615
  19. GEMZAR [Concomitant]
     Dosage: 400 MG, DAILY
     Route: 042
     Dates: end: 20110222
  20. GEMZAR [Concomitant]
     Dosage: 400 MG, DAILY
     Route: 042
     Dates: start: 20110308, end: 20110308
  21. GEMZAR [Concomitant]
     Dosage: 400 MG, DAILY
     Route: 042
     Dates: start: 20110322, end: 20110322
  22. GEMZAR [Concomitant]
     Dosage: 400 MG, DAILY
     Route: 042
     Dates: start: 20110405, end: 20110405
  23. PROMAC (POLAPREZINC) [Concomitant]
     Indication: BLOOD ZINC DECREASED
     Dosage: 150 MG, DAILY
     Route: 048
     Dates: start: 20120824

REACTIONS (11)
  - Dyspepsia [Recovered/Resolved]
  - Pruritus [Recovered/Resolved]
  - Constipation [Recovered/Resolved]
  - Hyperglycaemia [Unknown]
  - Nausea [Unknown]
  - Pollakiuria [Unknown]
  - Oedema [Unknown]
  - Decreased appetite [Unknown]
  - Abdominal pain upper [Recovering/Resolving]
  - Haemorrhage subcutaneous [Unknown]
  - Adverse event [Recovering/Resolving]
